FAERS Safety Report 7608448-9 (Version None)
Quarter: 2011Q3

REPORT INFORMATION
  Report Type: 
  Country: None (occurrence: None)
  Receive Date: 20110714
  Receipt Date: 20110705
  Transmission Date: 20111222
  Serious: Yes (Other)
  Sender: FDA-Public Use
  Company Number: US-ELI_LILLY_AND_COMPANY-US201106005219

PATIENT
  Sex: Female

DRUGS (2)
  1. CYMBALTA [Suspect]
     Dosage: 30 MG, UNK
     Dates: start: 20110501
  2. CYMBALTA [Suspect]
     Indication: NEURALGIA
     Dosage: 30 MG, UNK
     Dates: start: 20090101

REACTIONS (4)
  - CONSTIPATION [None]
  - FLATULENCE [None]
  - SURGERY [None]
  - GASTRIC DISORDER [None]
